FAERS Safety Report 14524356 (Version 1)
Quarter: 2018Q1

REPORT INFORMATION
  Report Type: Spontaneous
  Country: US (occurrence: US)
  Receive Date: 20180213
  Receipt Date: 20180213
  Transmission Date: 20180509
  Serious: No
  Sender: FDA-Public Use
  Company Number: US-PFIZER INC-2018061721

PATIENT
  Age: 60 Year
  Sex: Female
  Weight: 87.9 kg

DRUGS (1)
  1. ADVIL MIGRAINE [Suspect]
     Active Substance: IBUPROFEN
     Indication: MIGRAINE
     Dosage: 200MG LIQUID FILLED CAPSULES-2 CAPSULES TAKEN BY MOUTH TIMES ONE DOSE
     Route: 048
     Dates: start: 2017

REACTIONS (2)
  - Drug ineffective [Unknown]
  - Expired product administered [Unknown]

NARRATIVE: CASE EVENT DATE: 2017
